FAERS Safety Report 13023495 (Version 1)
Quarter: 2016Q4

REPORT INFORMATION
  Report Type: Spontaneous
  Country: US (occurrence: US)
  Receive Date: 20161212
  Receipt Date: 20161212
  Transmission Date: 20170207
  Serious: No
  Sender: FDA-Public Use
  Company Number: None

PATIENT
  Age: 76 Year
  Sex: Male
  Weight: 67.5 kg

DRUGS (9)
  1. OMEPRAZOL [Concomitant]
     Active Substance: OMEPRAZOLE
  2. JUBLIA [Suspect]
     Active Substance: EFINACONAZOLE
     Indication: ONYCHOMYCOSIS
     Route: 061
     Dates: start: 20160301, end: 20161101
  3. LATANOPROST. [Concomitant]
     Active Substance: LATANOPROST
  4. LIPO FLAVINOID [Concomitant]
  5. SYNTHROID [Concomitant]
     Active Substance: LEVOTHYROXINE SODIUM
  6. FLUOXIDINE [Concomitant]
  7. MULTI VITAMINS [Concomitant]
     Active Substance: VITAMINS
  8. LISINOPRIL. [Concomitant]
     Active Substance: LISINOPRIL
  9. WELLNESS TABLETS [Concomitant]

REACTIONS (3)
  - Drug ineffective [None]
  - Onychomycosis [None]
  - Disease recurrence [None]

NARRATIVE: CASE EVENT DATE: 20160901
